FAERS Safety Report 24834927 (Version 3)
Quarter: 2025Q2

REPORT INFORMATION
  Report Type: Spontaneous
  Country: US (occurrence: US)
  Receive Date: 20250113
  Receipt Date: 20250407
  Transmission Date: 20250716
  Serious: No
  Sender: SUNOVION
  Company Number: US-SMPA-2024SPA006750AA

PATIENT

DRUGS (6)
  1. GEMTESA [Suspect]
     Active Substance: VIBEGRON
     Indication: Micturition urgency
     Dosage: 75 MG, QD
     Route: 048
     Dates: start: 20241215, end: 20241226
  2. TACROLIMUS [Concomitant]
     Active Substance: TACROLIMUS
     Indication: Liver transplant rejection
     Dosage: 0.5 MG, BID
     Route: 065
  3. LEVOTHYROXINE [Concomitant]
     Active Substance: LEVOTHYROXINE
     Indication: Hypothyroidism
     Route: 065
  4. METFORMIN [Concomitant]
     Active Substance: METFORMIN HYDROCHLORIDE
     Indication: Diabetes mellitus
     Dosage: 500 MG, BID
     Route: 065
  5. ALENDRONATE [Concomitant]
     Active Substance: ALENDRONATE SODIUM
     Indication: Osteopenia
     Dosage: 70 MG, QW
     Route: 065
  6. OMEPRAZOLE [Concomitant]
     Active Substance: OMEPRAZOLE
     Indication: Gastrooesophageal reflux disease
     Dosage: 20 MG, BID
     Route: 065

REACTIONS (3)
  - Erythema [Unknown]
  - Initial insomnia [Unknown]
  - Pruritus [Unknown]

NARRATIVE: CASE EVENT DATE: 20241217
